FAERS Safety Report 6967571-2 (Version None)
Quarter: 2010Q3

REPORT INFORMATION
  Report Type: 
  Country: None (occurrence: None)
  Receive Date: 20100901
  Receipt Date: 20100818
  Transmission Date: 20110219
  Serious: Yes (Other)
  Sender: FDA-Public Use
  Company Number: 1000015922

PATIENT
  Age: 55 Year
  Sex: Male

DRUGS (2)
  1. ESCITALOPRAM [Suspect]
     Dosage: 5 MG (5 MG, 1 IN 1 D) ,ORAL
     Route: 048
  2. LORAZEPAM [Concomitant]

REACTIONS (8)
  - ANXIETY [None]
  - DELUSION [None]
  - DISTURBANCE IN ATTENTION [None]
  - HEART RATE INCREASED [None]
  - LOGORRHOEA [None]
  - NAUSEA [None]
  - NERVOUSNESS [None]
  - PANIC ATTACK [None]
